FAERS Safety Report 9476228 (Version 1)
Quarter: 2013Q3

REPORT INFORMATION
  Report Type: Spontaneous
  Country: TR (occurrence: None)
  Receive Date: 20130821
  Receipt Date: 20130821
  Transmission Date: 20140515
  Serious: Yes (Other)
  Sender: FDA-Public Use
  Company Number: 1847939

PATIENT
  Age: 45 Year
  Sex: Female

DRUGS (3)
  1. CYTARABINE [Suspect]
     Indication: ACUTE MYELOID LEUKAEMIA
     Dosage: 200 MG/M^2 (CYCLICAL)
  2. DOXORUBICIN [Concomitant]
  3. GRANISETRON [Concomitant]

REACTIONS (1)
  - Sinus bradycardia [None]
